FAERS Safety Report 13174535 (Version 2)
Quarter: 2017Q1

REPORT INFORMATION
  Report Type: Report from Study
  Country: US (occurrence: US)
  Receive Date: 20170201
  Receipt Date: 20170221
  Transmission Date: 20170428
  Serious: No
  Sender: FDA-Public Use
  Company Number: US-ASTRAZENECA-2013SE25716

PATIENT
  Age: 44 Year
  Sex: Male
  Weight: 82.1 kg

DRUGS (17)
  1. METOPROLOL TARTRATE. [Suspect]
     Active Substance: METOPROLOL TARTRATE
     Indication: BLOOD PRESSURE ABNORMAL
     Route: 048
     Dates: start: 2012
  2. LISINOPRIL. [Suspect]
     Active Substance: LISINOPRIL
     Indication: BLOOD PRESSURE ABNORMAL
     Route: 048
     Dates: start: 2012
  3. AMLODIPINE BESYLATE. [Concomitant]
     Active Substance: AMLODIPINE BESYLATE
     Route: 048
     Dates: start: 2011
  4. METOPROLOL TARTRATE. [Suspect]
     Active Substance: METOPROLOL TARTRATE
     Indication: ANTICOAGULANT THERAPY
     Route: 048
     Dates: start: 2012
  5. TRIAMTERENE HCTZ [Concomitant]
     Active Substance: HYDROCHLOROTHIAZIDE\TRIAMTERENE
     Route: 048
  6. RANITIDINE HYDROCHLORIDE. [Concomitant]
     Active Substance: RANITIDINE HYDROCHLORIDE
     Indication: DYSPEPSIA
     Route: 048
     Dates: start: 2010
  7. POTASSIUM CHLORIDE. [Concomitant]
     Active Substance: POTASSIUM CHLORIDE
     Indication: BLOOD POTASSIUM DECREASED
     Route: 048
     Dates: start: 2011
  8. LOVASTATIN. [Concomitant]
     Active Substance: LOVASTATIN
     Indication: BLOOD CHOLESTEROL ABNORMAL
     Route: 048
     Dates: start: 2011
  9. SEROQUEL XR [Suspect]
     Active Substance: QUETIAPINE FUMARATE
     Indication: SCHIZOPHRENIA
     Route: 048
  10. FENTANYL. [Concomitant]
     Active Substance: FENTANYL
  11. VALIUM [Concomitant]
     Active Substance: DIAZEPAM
     Dosage: AS REQUIRED
     Route: 048
     Dates: start: 2013
  12. SEROQUEL XR [Suspect]
     Active Substance: QUETIAPINE FUMARATE
     Indication: SCHIZOPHRENIA
     Route: 048
  13. SEROQUEL XR [Suspect]
     Active Substance: QUETIAPINE FUMARATE
     Indication: SCHIZOPHRENIA
     Route: 048
     Dates: start: 201005
  14. SEROQUEL XR [Suspect]
     Active Substance: QUETIAPINE FUMARATE
     Indication: SCHIZOPHRENIA
     Dosage: SEROQUEL IR
     Route: 048
     Dates: start: 200410
  15. LEVOTHYROXINE SODIUM. [Concomitant]
     Active Substance: LEVOTHYROXINE SODIUM
     Route: 048
     Dates: start: 2011
  16. DOCUSATE SODIUM. [Concomitant]
     Active Substance: DOCUSATE SODIUM
     Indication: CONSTIPATION
     Dosage: 1 AS REQUIRED
     Route: 048
     Dates: start: 2014
  17. TYLENOL [Concomitant]
     Active Substance: ACETAMINOPHEN

REACTIONS (20)
  - Hypersomnia [Unknown]
  - Memory impairment [Recovered/Resolved]
  - Tinnitus [Unknown]
  - Contusion [Unknown]
  - Dry mouth [Unknown]
  - Chest pain [Unknown]
  - Tremor [Unknown]
  - Somnolence [Unknown]
  - Hernia [Unknown]
  - Drug ineffective [Unknown]
  - Visual acuity reduced [Unknown]
  - Irritability [Unknown]
  - Nightmare [Unknown]
  - Feeling abnormal [Unknown]
  - Claustrophobia [Unknown]
  - Intentional product use issue [Unknown]
  - Fatigue [Unknown]
  - Mood swings [Recovered/Resolved]
  - Agitation [Unknown]
  - Ocular hyperaemia [Unknown]

NARRATIVE: CASE EVENT DATE: 2008
